FAERS Safety Report 8006301-2 (Version None)
Quarter: 2011Q4

REPORT INFORMATION
  Report Type: 
  Country: None (occurrence: None)
  Receive Date: 20111226
  Receipt Date: 20111212
  Transmission Date: 20120403
  Serious: Yes (Other)
  Sender: FDA-Public Use
  Company Number: PHHY2011CA19697

PATIENT
  Sex: Male

DRUGS (1)
  1. SANDOSTATIN LAR [Suspect]
     Indication: CARCINOID TUMOUR
     Dosage: 30 MG, EVERY 4 WEEKS
     Route: 030
     Dates: start: 20110302

REACTIONS (11)
  - BLOOD CREATININE INCREASED [None]
  - URINARY TRACT INFECTION [None]
  - FLANK PAIN [None]
  - RASH [None]
  - NEPHROLITHIASIS [None]
  - DYSURIA [None]
  - RECTAL HAEMORRHAGE [None]
  - FUNGAL INFECTION [None]
  - BLOOD PRESSURE SYSTOLIC INCREASED [None]
  - MYALGIA [None]
  - HAEMATOCHEZIA [None]
